FAERS Safety Report 9688805 (Version 1)
Quarter: 2013Q4

REPORT INFORMATION
  Report Type: Spontaneous
  Country: US (occurrence: US)
  Receive Date: 20131114
  Receipt Date: 20131114
  Transmission Date: 20140711
  Serious: Yes (Hospitalization)
  Sender: FDA-Public Use
  Company Number: US-BAYER-2013-138872

PATIENT
  Age: 40 Year
  Sex: Female

DRUGS (10)
  1. YAZ [Suspect]
  2. GIANVI [Suspect]
  3. OCELLA [Suspect]
  4. PHENDIMETRAZINE [Concomitant]
     Dosage: 150 MG, QD
     Route: 048
  5. METFORMIN [Concomitant]
     Dosage: 500 MG, BID
     Route: 048
  6. TREXIMET [Concomitant]
     Dosage: 85/500MG, AS DIRECTED
     Route: 048
  7. CHERATUSSIN AC [Concomitant]
     Dosage: UNK UNK, QID
  8. ROBITUSSIN AC [CODEINE PHOSPHATE,GUAIFENESIN,PHENIRAMINE MALEATE] [Concomitant]
  9. LEVAQUIN [Concomitant]
     Dosage: 750 MG, QD
  10. MUCINEX [Concomitant]
     Dosage: UNK UNK, BID

REACTIONS (1)
  - Pulmonary embolism [None]
